FAERS Safety Report 8948548 (Version 2)
Quarter: 2013Q3

REPORT INFORMATION
  Report Type: Report from Study
  Country: US (occurrence: US)
  Receive Date: 20121206
  Receipt Date: 20130718
  Transmission Date: 20140515
  Serious: Yes (Death, Hospitalization, Other)
  Sender: FDA-Public Use
  Company Number: PHEH2012US023717

PATIENT
  Age: 78 Year
  Sex: Male
  Weight: 106.8 kg

DRUGS (8)
  1. GLEEVEC [Suspect]
     Indication: CHRONIC MYELOID LEUKAEMIA
     Dosage: 200 MG, DAILY (100MG 2 PO DAILY)
     Route: 048
     Dates: start: 2004
  2. GLEEVEC [Suspect]
     Dosage: 100 MG, PER DAY
     Dates: end: 20121024
  3. GLYBURIDE [Concomitant]
     Dosage: 1 DF, QD BEFORE BREAKFAST
     Route: 048
  4. NEXIUM [Concomitant]
     Dosage: 1 DF, QD
     Route: 048
  5. TIMOPTIC [Concomitant]
     Dosage: 1 DRP,DAILY
  6. ADVAIR DISKUS [Concomitant]
     Dosage: 2 PUFF (100-50 MCG), TWICE A DAY
     Dates: start: 20120702
  7. KEFLEX [Concomitant]
     Dosage: 1 DF, EVERY 6 HOURS
     Route: 048
     Dates: start: 20120509
  8. LORTAB [Concomitant]
     Dosage: 1 DF, EVERY 6 HOURS
     Route: 048
     Dates: start: 20120815

REACTIONS (27)
  - Small cell lung cancer [Fatal]
  - Wheezing [Fatal]
  - Asthenia [Fatal]
  - Dyspnoea [Fatal]
  - Cough [Fatal]
  - Second primary malignancy [Fatal]
  - Pneumonia [Recovering/Resolving]
  - Refractory cytopenia with multilineage dysplasia [Unknown]
  - Thyroid neoplasm [Unknown]
  - Pulmonary mass [Unknown]
  - Arteriosclerosis coronary artery [Unknown]
  - Renal cyst [Unknown]
  - Prostatic calcification [Unknown]
  - Aortic arteriosclerosis [Unknown]
  - Aortic dilatation [Unknown]
  - Gastrointestinal toxicity [Unknown]
  - Adrenal adenoma [Unknown]
  - Metastasis [Unknown]
  - Hepatic steatosis [Unknown]
  - Pancytopenia [Unknown]
  - Spinal osteoarthritis [Unknown]
  - Pleural effusion [Unknown]
  - Inflammation [Unknown]
  - Hearing impaired [Unknown]
  - Arthralgia [Unknown]
  - Weight fluctuation [Unknown]
  - Anxiety [Unknown]
